FAERS Safety Report 5734548-4 (Version None)
Quarter: 2008Q2

REPORT INFORMATION
  Report Type: 
  Country: None (occurrence: None)
  Receive Date: 20080512
  Receipt Date: 20080507
  Transmission Date: 20081010
  Serious: Yes (Other)
  Sender: FDA-Public Use
  Company Number: PHEH2008US04117

PATIENT
  Age: 4 Year
  Sex: Female
  Weight: 19.047 kg

DRUGS (1)
  1. FOCALIN XR [Suspect]
     Indication: ATTENTION DEFICIT/HYPERACTIVITY DISORDER
     Dosage: 5 MG, QD IN AM
     Route: 048
     Dates: start: 20080302, end: 20080329

REACTIONS (2)
  - EXTRAPYRAMIDAL DISORDER [None]
  - NUCHAL RIGIDITY [None]
